FAERS Safety Report 11634330 (Version 3)
Quarter: 2015Q4

REPORT INFORMATION
  Report Type: Spontaneous
  Country: US (occurrence: None)
  Receive Date: 20151015
  Receipt Date: 20151112
  Transmission Date: 20160304
  Serious: Yes (Hospitalization, Other)
  Sender: FDA-Public Use
  Company Number: US-MDT-ADR-2015-01965

PATIENT
  Age: 47 Year
  Sex: Female

DRUGS (1)
  1. GABLOFEN [Suspect]
     Active Substance: BACLOFEN
     Indication: MUSCLE SPASTICITY

REACTIONS (8)
  - Pneumonia [None]
  - Dyspnoea [None]
  - Device issue [None]
  - No adverse event [None]
  - Musculoskeletal stiffness [None]
  - Muscle contracture [None]
  - Overdose [None]
  - Drug withdrawal syndrome [None]
